FAERS Safety Report 7584250-1 (Version None)
Quarter: 2011Q2

REPORT INFORMATION
  Report Type: 
  Country: None (occurrence: None)
  Receive Date: 20110630
  Receipt Date: 20110624
  Transmission Date: 20111010
  Serious: Yes (Life-Threatening, Other)
  Sender: FDA-Public Use
  Company Number: IE-ELI_LILLY_AND_COMPANY-IE201106000112

PATIENT
  Age: 48 Year
  Sex: Male

DRUGS (2)
  1. REOPRO [Concomitant]
     Dosage: UNK, UNKNOWN
     Route: 065
  2. EFFIENT [Suspect]
     Dosage: UNK, UNKNOWN
     Route: 065

REACTIONS (1)
  - HAEMORRHAGE INTRACRANIAL [None]
